FAERS Safety Report 5211189-9 (Version None)
Quarter: 2006Q4

REPORT INFORMATION
  Report Type: 
  Country: None (occurrence: None)
  Receive Date: 20061114
  Receipt Date: 20060925
  Transmission Date: 20070319
  Serious: No
  Sender: FDA-Public Use
  Company Number: S06-USA-03886-01

PATIENT

DRUGS (4)
  1. NAMENDA [Suspect]
     Indication: MEMORY IMPAIRMENT
     Dosage: 5 MG QD PO
     Route: 048
     Dates: start: 20060821, end: 20060827
  2. NAMENDA [Suspect]
     Indication: MEMORY IMPAIRMENT
     Dosage: 5 MG BID PO
     Route: 048
     Dates: start: 20060828, end: 20060801
  3. DILANTIN [Concomitant]
  4. ANTIVERT [Concomitant]

REACTIONS (2)
  - EJACULATION FAILURE [None]
  - ERECTILE DYSFUNCTION [None]
